FAERS Safety Report 7844351-7 (Version None)
Quarter: 2011Q4

REPORT INFORMATION
  Report Type: 
  Country: None (occurrence: None)
  Receive Date: 20111025
  Receipt Date: 20111010
  Transmission Date: 20120403
  Serious: Yes (Hospitalization)
  Sender: FDA-Public Use
  Company Number: GB-WATSON-2011-17004

PATIENT
  Age: 52 Year
  Sex: Female

DRUGS (6)
  1. DILTIAZEM HYDROCHLORIDE [Suspect]
     Indication: OVERDOSE
     Dosage: 1680 MG
  2. DIAZEPAM [Suspect]
     Indication: OVERDOSE
     Dosage: 35 MG
  3. TEMAZEPAM [Suspect]
     Indication: OVERDOSE
     Dosage: 70 MG
  4. CITALOPRAM HYDROBROMIDE [Suspect]
     Indication: OVERDOSE
     Dosage: 70 MG
  5. DIHYDROCODEINE BITARTRATE INJ [Suspect]
     Indication: OVERDOSE
  6. AMITRIPTYLINE HCL [Suspect]
     Indication: OVERDOSE

REACTIONS (7)
  - HEART RATE DECREASED [None]
  - ATRIOVENTRICULAR BLOCK COMPLETE [None]
  - COMA SCALE ABNORMAL [None]
  - PNEUMONIA ASPIRATION [None]
  - RESPIRATORY RATE DECREASED [None]
  - BLOOD PRESSURE DECREASED [None]
  - OVERDOSE [None]
